FAERS Safety Report 12641893 (Version 2)
Quarter: 2020Q1

REPORT INFORMATION
  Report Type: Report from Study
  Country: None (occurrence: CA)
  Receive Date: 20160810
  Receipt Date: 20200130
  Transmission Date: 20200409
  Serious: Yes (Other)
  Sender: FDA-Public Use
  Company Number: CA-ABBVIE-15P-028-1385038-00

PATIENT
  Sex: Male

DRUGS (3)
  1. HUMIRA [Suspect]
     Active Substance: ADALIMUMAB
     Indication: RHEUMATOID ARTHRITIS
     Route: 058
     Dates: start: 20040621
  2. HUMIRA [Suspect]
     Active Substance: ADALIMUMAB
     Route: 058
  3. HUMIRA [Suspect]
     Active Substance: ADALIMUMAB
     Route: 058
     Dates: end: 2016

REACTIONS (4)
  - Nodule [Recovering/Resolving]
  - Pulmonary mass [Not Recovered/Not Resolved]
  - Incision site complication [Not Recovered/Not Resolved]
  - Skin discolouration [Recovering/Resolving]

NARRATIVE: CASE EVENT DATE: 2016
